FAERS Safety Report 16719215 (Version 2)
Quarter: 2019Q3

REPORT INFORMATION
  Report Type: Report from Study
  Country: US (occurrence: US)
  Receive Date: 20190820
  Receipt Date: 20190910
  Transmission Date: 20191005
  Serious: Yes (Other)
  Sender: FDA-Public Use
  Company Number: US-TESAROUBC-2019-TSO02188-US

PATIENT
  Age: 52 Year
  Sex: Female

DRUGS (3)
  1. ZEJULA [Suspect]
     Active Substance: NIRAPARIB
     Dosage: 200 MG, QD
     Route: 048
     Dates: start: 201906
  2. ZEJULA [Suspect]
     Active Substance: NIRAPARIB
     Indication: OVARIAN CANCER
     Dosage: 300 MG, QAM WITH FOOD
     Route: 048
     Dates: start: 20190607
  3. ZEJULA [Suspect]
     Active Substance: NIRAPARIB
     Dosage: 300 MG, QD
     Route: 048

REACTIONS (27)
  - Neuropathy peripheral [Unknown]
  - Bone pain [Recovering/Resolving]
  - Hypertension [Not Recovered/Not Resolved]
  - Transient ischaemic attack [Unknown]
  - Vomiting [Unknown]
  - Mastitis [Unknown]
  - Platelet count decreased [Unknown]
  - Cancer pain [Unknown]
  - Decreased interest [Unknown]
  - Rectal tenesmus [Unknown]
  - Anxiety [Unknown]
  - Fatigue [Not Recovered/Not Resolved]
  - Cardiac failure congestive [Unknown]
  - Migraine [Unknown]
  - Post-traumatic stress disorder [Unknown]
  - Urinary incontinence [Unknown]
  - Insomnia [Not Recovered/Not Resolved]
  - Abdominal pain upper [Unknown]
  - Depression [Unknown]
  - Blood cholesterol increased [Unknown]
  - Back pain [Unknown]
  - Asthenia [Not Recovered/Not Resolved]
  - Ascites [Unknown]
  - Weight increased [Unknown]
  - Neuralgia [Unknown]
  - Tremor [Unknown]
  - Nausea [Not Recovered/Not Resolved]

NARRATIVE: CASE EVENT DATE: 2019
